FAERS Safety Report 5160628-0 (Version None)
Quarter: 2006Q4

REPORT INFORMATION
  Report Type: 
  Country: None (occurrence: None)
  Receive Date: 20061121
  Receipt Date: 20061109
  Transmission Date: 20070319
  Serious: Yes (Other)
  Sender: FDA-Public Use
  Company Number: 2006139354

PATIENT
  Age: 53 Year
  Sex: Male
  Weight: 60.782 kg

DRUGS (5)
  1. CHANTIX [Suspect]
     Indication: SMOKING CESSATION THERAPY
     Dosage: (BID: EVERY DAY)
     Dates: start: 20060101, end: 20061102
  2. SPIRIVA [Concomitant]
  3. ALBUTEROL [Concomitant]
  4. SELECTIVE BETA-2-ADRENORECEPTOR AGONISTS (SELECTIVE BETA-2-ADRENORECEP [Concomitant]
  5. MULTI-VITAMINS [Concomitant]

REACTIONS (5)
  - ABNORMAL DREAMS [None]
  - CHRONIC OBSTRUCTIVE PULMONARY DISEASE [None]
  - DYSPNOEA [None]
  - NIGHTMARE [None]
  - PHYSICAL ASSAULT [None]
